FAERS Safety Report 15327892 (Version 1)
Quarter: 2018Q3

REPORT INFORMATION
  Report Type: Spontaneous
  Country: US (occurrence: US)
  Receive Date: 20180828
  Receipt Date: 20180828
  Transmission Date: 20181010
  Serious: No
  Sender: FDA-Public Use
  Company Number: US-ROCHE-1996522

PATIENT
  Sex: Male
  Weight: 104.42 kg

DRUGS (1)
  1. PEGASYS [Suspect]
     Active Substance: PEGINTERFERON ALFA-2A
     Indication: POLYCYTHAEMIA VERA
     Dosage: 90 MCG ALTERNATING WITH 45 MCG
     Route: 058
     Dates: start: 201507

REACTIONS (5)
  - Medication error [Unknown]
  - Intentional product use issue [Unknown]
  - No adverse event [Unknown]
  - Multiple use of single-use product [Unknown]
  - Off label use [Unknown]
